FAERS Safety Report 5836076-4 (Version None)
Quarter: 2008Q3

REPORT INFORMATION
  Report Type: 
  Country: None (occurrence: None)
  Receive Date: 20080806
  Receipt Date: 20080730
  Transmission Date: 20090109
  Serious: Yes (Other)
  Sender: FDA-Public Use
  Company Number: JP-MERCK-0808USA00185

PATIENT
  Weight: 2 kg

DRUGS (2)
  1. DECADRON [Suspect]
     Route: 065
  2. PREDNISOLON [Concomitant]
     Route: 065

REACTIONS (3)
  - ATRIOVENTRICULAR BLOCK [None]
  - FOETAL DISTRESS SYNDROME [None]
  - PERICARDIAL EFFUSION [None]
